FAERS Safety Report 23963475 (Version 2)
Quarter: 2024Q3

REPORT INFORMATION
  Report Type: Spontaneous
  Country: US (occurrence: US)
  Receive Date: 20240611
  Receipt Date: 20240807
  Transmission Date: 20241016
  Serious: Yes (Other)
  Sender: PFIZER
  Company Number: US-PFIZER INC-202400189583

PATIENT
  Age: 66 Year
  Sex: Female
  Weight: 68.95 kg

DRUGS (4)
  1. NYVEPRIA [Suspect]
     Active Substance: PEGFILGRASTIM-APGF
     Indication: White blood cell count increased
     Dosage: UNK
     Dates: start: 20240515
  2. ACYCLOVIR [Concomitant]
     Active Substance: ACYCLOVIR
     Dosage: 400 MG, 2X/DAY
     Route: 048
  3. ALLOPURINOL [Concomitant]
     Active Substance: ALLOPURINOL
     Dosage: 300MG ONE TABLET ONCE A DAY FOR 30 DAYS BY MOUTH
     Route: 048
  4. FAMOTIDINE [Concomitant]
     Active Substance: FAMOTIDINE
     Indication: Gastrooesophageal reflux disease
     Dosage: 40MG TABLET ONE AT BEDTIME BY MOUTH
     Route: 048

REACTIONS (10)
  - Myocardial infarction [Unknown]
  - Bone pain [Not Recovered/Not Resolved]
  - Chest pain [Recovering/Resolving]
  - Chest discomfort [Recovered/Resolved]
  - Loss of personal independence in daily activities [Unknown]
  - Cough [Unknown]
  - Malaise [Unknown]
  - Feeling abnormal [Unknown]
  - Pain [Unknown]
  - Eye disorder [Unknown]

NARRATIVE: CASE EVENT DATE: 20240101
